FAERS Safety Report 26193614 (Version 1)
Quarter: 2025Q4

REPORT INFORMATION
  Report Type: Spontaneous
  Country: US (occurrence: None)
  Receive Date: 20251223
  Receipt Date: 20251223
  Transmission Date: 20260118
  Serious: Yes (Hospitalization)
  Sender: FDA-CTU
  Company Number: None

PATIENT
  Sex: Female

DRUGS (1)
  1. TOBRAMYCIN [Suspect]
     Active Substance: TOBRAMYCIN
     Indication: Bronchiectasis
     Dosage: INHALE 1 VIAL (5 ML) VIA NEBULIZER TWICE DAILY CYCLE FOR 1 MONTH ON AND FOR 1 MONTH OFF
     Route: 050
     Dates: start: 20250416

REACTIONS (1)
  - Hospitalisation [None]
